FAERS Safety Report 7519408-0 (Version None)
Quarter: 2011Q2

REPORT INFORMATION
  Report Type: 
  Country: None (occurrence: None)
  Receive Date: 20110602
  Receipt Date: 20110525
  Transmission Date: 20111010
  Serious: Yes (Hospitalization)
  Sender: FDA-Public Use
  Company Number: PHHY2011JP44845

PATIENT
  Age: 70 Year
  Sex: Female

DRUGS (5)
  1. VINCRISTINE [Suspect]
  2. DOXORUBICIN HCL [Suspect]
  3. DEXAMETHASONE [Suspect]
  4. MELPHALAN HYDROCHLORIDE [Suspect]
  5. PREDNISOLONE [Suspect]

REACTIONS (12)
  - METABOLIC ACIDOSIS [None]
  - LIVER DISORDER [None]
  - PYREXIA [None]
  - DIABETES MELLITUS [None]
  - DIABETIC KETOACIDOSIS [None]
  - ATROPHY [None]
  - EOSINOPHIL COUNT INCREASED [None]
  - ERYTHEMA MULTIFORME [None]
  - EPSTEIN-BARR VIRUS INFECTION [None]
  - HEPATOMEGALY [None]
  - HEPATIC ENZYME INCREASED [None]
  - LIVIDITY [None]
